FAERS Safety Report 17282058 (Version 3)
Quarter: 2020Q1

REPORT INFORMATION
  Report Type: Report from Study
  Country: CA (occurrence: CA)
  Receive Date: 20200117
  Receipt Date: 20200319
  Transmission Date: 20200409
  Serious: Yes (Hospitalization, Other)
  Sender: FDA-Public Use
  Company Number: CA-REGENERON PHARMACEUTICALS, INC.-2020-12883

PATIENT

DRUGS (4)
  1. EYLEA [Suspect]
     Active Substance: AFLIBERCEPT
     Indication: DIABETIC RETINAL OEDEMA
     Dosage: LEFT EYE, DOSE AND FREQUENCY NOT SPECIFIED
     Route: 031
     Dates: start: 20180628, end: 20200221
  2. EYLEA [Suspect]
     Active Substance: AFLIBERCEPT
     Dosage: BILATERAL, DOSE AND FREQUENCY NOT SPECIFIED
     Route: 031
     Dates: start: 20200221
  3. OZEMPIC [Concomitant]
     Active Substance: SEMAGLUTIDE
     Indication: PRODUCT USED FOR UNKNOWN INDICATION
     Dosage: UNK
  4. JANUVIA [Concomitant]
     Active Substance: SITAGLIPTIN PHOSPHATE
     Indication: PRODUCT USED FOR UNKNOWN INDICATION
     Dosage: UNK

REACTIONS (6)
  - Visual impairment [Unknown]
  - Gastric bypass [Unknown]
  - Eye haemorrhage [Unknown]
  - Metabolic surgery [Unknown]
  - Eye disorder [Unknown]
  - Metamorphopsia [Unknown]

NARRATIVE: CASE EVENT DATE: 2019
